FAERS Safety Report 12495886 (Version 1)
Quarter: 2016Q2

REPORT INFORMATION
  Report Type: Spontaneous
  Country: BR (occurrence: BR)
  Receive Date: 20160624
  Receipt Date: 20160624
  Transmission Date: 20160815
  Serious: Yes (Hospitalization)
  Sender: FDA-Public Use
  Company Number: BR-AMGEN-BRASP2011072349

PATIENT
  Age: 52 Year
  Sex: Female
  Weight: 78 kg

DRUGS (13)
  1. VYTORIN [Concomitant]
     Active Substance: EZETIMIBE\SIMVASTATIN
     Dosage: UNK, (STRENGTH 40 MG)
  2. LEXAPRO [Concomitant]
     Active Substance: ESCITALOPRAM OXALATE
     Dosage: 10 WITH UNSPECIFIED UNIT, ONCE A DAY, (STRENGTH 10)
  3. ZETIA [Concomitant]
     Active Substance: EZETIMIBE
     Dosage: 10 WITH UNSPECIFIED UNIT, 1X/DAY (STRENGTH 10)
  4. LOSARTAN POTASSIUM. [Concomitant]
     Active Substance: LOSARTAN POTASSIUM
     Dosage: 25 MG, 1X/DAY, (STRENGTH 50 MG, 1/2 ^CP^ ONCE A DAY)
  5. HIGROTON [Concomitant]
     Active Substance: CHLORTHALIDONE
     Dosage: UNK, (STRENGTH 25 MG)
  6. RIVOTRIL [Concomitant]
     Active Substance: CLONAZEPAM
     Dosage: 15 GTT, 1X/DAY (15 DROPS ONCE A DAY AT NIGHT)
  7. ENBREL [Suspect]
     Active Substance: ETANERCEPT
     Dosage: 25 MG, 2X/WEEK
     Route: 058
     Dates: start: 2011
  8. AAS [Concomitant]
     Active Substance: ASPIRIN
     Dosage: 100 MG, 1X/DAY, (STRENGTH 100 MG)
  9. OMEPRAZOLE. [Concomitant]
     Active Substance: OMEPRAZOLE
     Dosage: 20 MG, 2X/DAY (STRENGTH 20 MG, EVERY 12 HOURS)
  10. ENBREL [Suspect]
     Active Substance: ETANERCEPT
     Indication: RHEUMATOID ARTHRITIS
     Dosage: 50 MG, ONCE WEEKLY
     Route: 065
     Dates: start: 20110819, end: 2011
  11. CARVEDILOL. [Concomitant]
     Active Substance: CARVEDILOL
     Dosage: (STRENGTH 6.25), EVERY 12 HOURS
  12. METHOTREXATE [Concomitant]
     Active Substance: METHOTREXATE
     Dosage: UNK, (STRENGTH 2.5 MG), FOR A COUPLE OF YEARS
  13. RUPATADINE FUMARATE [Concomitant]
     Active Substance: RUPATADINE FUMARATE
     Dosage: 10 MG, 1X/DAY (STRENGTH 10 MG)

REACTIONS (3)
  - Blood potassium decreased [Unknown]
  - Ocular hyperaemia [Unknown]
  - Nasopharyngitis [Unknown]

NARRATIVE: CASE EVENT DATE: 2011
